FAERS Safety Report 5813886-0 (Version None)
Quarter: 2008Q3

REPORT INFORMATION
  Report Type: 
  Country: None (occurrence: None)
  Receive Date: 20080717
  Receipt Date: 20080702
  Transmission Date: 20090109
  Serious: Yes (Other)
  Sender: FDA-Public Use
  Company Number: JP-GENENTECH-264438

PATIENT
  Sex: Female

DRUGS (2)
  1. HERCEPTIN [Suspect]
     Indication: BREAST CANCER RECURRENT
     Dosage: 2 MG, 1/WEEK
     Route: 041
  2. CAPECITABINE [Suspect]
     Indication: BREAST CANCER RECURRENT
     Route: 048

REACTIONS (1)
  - CARDIAC TAMPONADE [None]
